FAERS Safety Report 6581739-9 (Version None)
Quarter: 2010Q1

REPORT INFORMATION
  Report Type: 
  Country: None (occurrence: None)
  Receive Date: 20100215
  Receipt Date: 20100202
  Transmission Date: 20100710
  Serious: Yes (Hospitalization)
  Sender: FDA-Public Use
  Company Number: PHHY2010MX06359

PATIENT
  Sex: Female

DRUGS (1)
  1. DIOVAN [Suspect]
     Indication: HYPERTENSION
     Dosage: 160 MG DAILY
     Dates: start: 20090101

REACTIONS (10)
  - FALL [None]
  - FEMUR FRACTURE [None]
  - IMPAIRED HEALING [None]
  - INTERVERTEBRAL DISC PROTRUSION [None]
  - KNEE OPERATION [None]
  - MENISCUS LESION [None]
  - MENISCUS OPERATION [None]
  - NERVE COMPRESSION [None]
  - SURGERY [None]
  - WOUND INFECTION STAPHYLOCOCCAL [None]
